FAERS Safety Report 5899290-8 (Version None)
Quarter: 2008Q3

REPORT INFORMATION
  Report Type: 
  Country: None (occurrence: None)
  Receive Date: 20080925
  Receipt Date: 20080919
  Transmission Date: 20090109
  Serious: Yes (Death)
  Sender: FDA-Public Use
  Company Number: NO-MERCK-0809NOR00012

PATIENT
  Sex: Male

DRUGS (2)
  1. ZETIA [Suspect]
     Route: 048
     Dates: start: 20071101
  2. ATORVASTATIN CALCIUM [Concomitant]
     Route: 048

REACTIONS (2)
  - ALANINE AMINOTRANSFERASE INCREASED [None]
  - MULTI-ORGAN FAILURE [None]
